FAERS Safety Report 22939411 (Version 3)
Quarter: 2023Q4

REPORT INFORMATION
  Report Type: Report from Study
  Country: FR (occurrence: FR)
  Receive Date: 20230913
  Receipt Date: 20231013
  Transmission Date: 20240109
  Serious: Yes (Hospitalization)
  Sender: FDA-Public Use
  Company Number: FR-SERVIER-S23010324

PATIENT

DRUGS (9)
  1. PEGASPARGASE [Suspect]
     Active Substance: PEGASPARGASE
     Indication: Acute lymphocytic leukaemia
     Dosage: 622.5 IU, D4
     Route: 042
     Dates: start: 20220104, end: 20220217
  2. VINCRISTINE [Suspect]
     Active Substance: VINCRISTINE
     Indication: Acute lymphocytic leukaemia
     Dosage: 0.75 MG, D1, D8, D15
     Route: 042
     Dates: start: 20220104, end: 20220217
  3. DEXAMETHASONE [Suspect]
     Active Substance: DEXAMETHASONE
     Indication: Acute lymphocytic leukaemia
     Dosage: 1.63 MG/M3, D1-D14
     Route: 048
     Dates: start: 20220104, end: 20220217
  4. THIOGUANINE [Suspect]
     Active Substance: THIOGUANINE
     Indication: Acute lymphocytic leukaemia
     Dosage: 31 MG, D29-D42
     Route: 048
     Dates: start: 20220104, end: 20220217
  5. CYTARABINE [Suspect]
     Active Substance: CYTARABINE
     Indication: Acute lymphocytic leukaemia
     Dosage: 38.5 MG, D31, D32, D33, D34 TO D41
     Route: 042
     Dates: start: 20220104, end: 20220217
  6. CYCLOPHOSPHAMIDE [Suspect]
     Active Substance: CYCLOPHOSPHAMIDE
     Indication: Acute lymphocytic leukaemia
     Dosage: 520 MG, D29
     Route: 042
     Dates: start: 20220104, end: 20220217
  7. METHOTREXATE [Suspect]
     Active Substance: METHOTREXATE
     Indication: Acute lymphocytic leukaemia
     Dosage: 10 MG, D4, D31
     Route: 037
     Dates: start: 20220104, end: 20220217
  8. DAUNORUBICIN [Suspect]
     Active Substance: DAUNORUBICIN
     Indication: Acute lymphocytic leukaemia
     Dosage: 12.4 MG, D1, D8, D15
     Route: 042
     Dates: start: 20220104, end: 20220218
  9. DOXORUBICIN [Suspect]
     Active Substance: DOXORUBICIN
     Indication: Acute lymphocytic leukaemia
     Dosage: 12.40 MG, D1, D8, D15
     Route: 042
     Dates: start: 20220104, end: 20220217

REACTIONS (3)
  - Diarrhoea [Recovered/Resolved]
  - Pyrexia [Recovered/Resolved]
  - Enterovirus test positive [Recovered/Resolved]

NARRATIVE: CASE EVENT DATE: 20220215
